FAERS Safety Report 8061881-6 (Version None)
Quarter: 2012Q1

REPORT INFORMATION
  Report Type: 
  Country: None (occurrence: None)
  Receive Date: 20120123
  Receipt Date: 20120110
  Transmission Date: 20120608
  Serious: Yes (Death, Hospitalization, Other)
  Sender: FDA-Public Use
  Company Number: US-ELI_LILLY_AND_COMPANY-US201111000153

PATIENT
  Sex: Male

DRUGS (2)
  1. FORTEO [Suspect]
     Indication: OSTEOPOROSIS
     Dosage: UNK
     Route: 065
  2. CIPROFLOXACIN [Concomitant]

REACTIONS (12)
  - GASTROOESOPHAGEAL REFLUX DISEASE [None]
  - SEPTIC SHOCK [None]
  - PEPTIC ULCER [None]
  - DYSLIPIDAEMIA [None]
  - BACTERAEMIA [None]
  - NON-SMALL CELL LUNG CANCER STAGE IIIA [None]
  - MULTI-ORGAN FAILURE [None]
  - RENAL FAILURE CHRONIC [None]
  - BENIGN PROSTATIC HYPERPLASIA [None]
  - DEATH [None]
  - UNRESPONSIVE TO STIMULI [None]
  - PNEUMONIA STAPHYLOCOCCAL [None]
